FAERS Safety Report 21673503 (Version 2)
Quarter: 2025Q3

REPORT INFORMATION
  Report Type: Spontaneous
  Country: EU (occurrence: EU)
  Receive Date: 20221202
  Receipt Date: 20250715
  Transmission Date: 20251020
  Serious: Yes (Other)
  Sender: MYLAN
  Company Number: EU-MYLANLABS-2022M1134468

PATIENT
  Age: 70 Year
  Sex: Male

DRUGS (3)
  1. IMATINIB [Suspect]
     Active Substance: IMATINIB
     Indication: Gastrointestinal stromal tumour
     Dosage: 400 MILLIGRAM, QD
     Dates: start: 201801
  2. IMATINIB [Suspect]
     Active Substance: IMATINIB
     Dosage: 800 MILLIGRAM, QD
     Dates: start: 2018
  3. IMATINIB [Suspect]
     Active Substance: IMATINIB
     Dosage: 600 MILLIGRAM, QD
     Dates: start: 2018

REACTIONS (4)
  - Skin toxicity [Unknown]
  - Fluid retention [Unknown]
  - Drug ineffective [Unknown]
  - Disease progression [Unknown]
